FAERS Safety Report 22213234 (Version 1)
Quarter: 2023Q2

REPORT INFORMATION
  Report Type: Spontaneous
  Country: US (occurrence: US)
  Receive Date: 20230414
  Receipt Date: 20230414
  Transmission Date: 20230722
  Serious: No
  Sender: FDA-Public Use
  Company Number: US-ALLERGAN-2214674US

PATIENT
  Age: 33 Year
  Sex: Female

DRUGS (1)
  1. LILETTA [Suspect]
     Active Substance: LEVONORGESTREL
     Indication: Product used for unknown indication
     Dosage: 52 MG, SINGLE
     Route: 015
     Dates: start: 20220211, end: 20220408

REACTIONS (5)
  - Pelvic pain [Recovered/Resolved]
  - Intermenstrual bleeding [Recovered/Resolved]
  - Device deployment issue [Unknown]
  - Back pain [Unknown]
  - Adnexa uteri cyst [Unknown]

NARRATIVE: CASE EVENT DATE: 20220211
